FAERS Safety Report 12217768 (Version 1)
Quarter: 2016Q1

REPORT INFORMATION
  Report Type: Spontaneous
  Country: CH (occurrence: CH)
  Receive Date: 20160329
  Receipt Date: 20160329
  Transmission Date: 20160526
  Serious: Yes (Hospitalization)
  Sender: FDA-Public Use
  Company Number: CH-ROCHE-1731143

PATIENT
  Age: 89 Year
  Sex: Female

DRUGS (20)
  1. TRANSTEC [Suspect]
     Active Substance: BUPRENORPHINE
     Indication: PAIN
     Route: 060
  2. CORDARONE [Concomitant]
     Active Substance: AMIODARONE HYDROCHLORIDE
     Dosage: 200 MG 5 IN 7 DAYS
     Route: 065
  3. LASIX [Concomitant]
     Active Substance: FUROSEMIDE
     Dosage: 60 MG 2X/D
     Route: 065
  4. XANAX [Suspect]
     Active Substance: ALPRAZOLAM
     Indication: PRODUCT USED FOR UNKNOWN INDICATION
     Route: 048
     Dates: start: 2014
  5. NORVASC [Concomitant]
     Active Substance: AMLODIPINE BESYLATE
     Dosage: 10 MG/J
     Route: 065
  6. MAGNESIOCARD [Concomitant]
     Active Substance: MAGNESIUM ASPARTATE HYDROCHLORIDE
     Dosage: 10 MMOL/D
     Route: 065
  7. VITAMIN D3 [Concomitant]
     Active Substance: CHOLECALCIFEROL
     Dosage: 800 IU/D
     Route: 065
  8. SINTROM [Suspect]
     Active Substance: ACENOCOUMAROL
     Indication: ATRIAL FIBRILLATION
     Route: 048
     Dates: start: 2014, end: 20150624
  9. LYRICA [Suspect]
     Active Substance: PREGABALIN
     Indication: PAIN
     Route: 065
     Dates: start: 201507
  10. TRANSTEC [Suspect]
     Active Substance: BUPRENORPHINE
     Route: 062
  11. ZYLORIC [Concomitant]
     Active Substance: ALLOPURINOL
     Dosage: 100 MG/D
     Route: 065
  12. TEMGESIC [Suspect]
     Active Substance: BUPRENORPHINE HYDROCHLORIDE
     Indication: PAIN
     Route: 060
     Dates: start: 201507
  13. ALDACTONE [Concomitant]
     Active Substance: SPIRONOLACTONE
     Dosage: 25 MG/D
     Route: 065
  14. METOLAZONE. [Concomitant]
     Active Substance: METOLAZONE
     Dosage: 2.5 MG/D
     Route: 065
  15. NEXIUM [Concomitant]
     Active Substance: ESOMEPRAZOLE MAGNESIUM
     Dosage: 40 MG/D
     Route: 065
  16. ROCEPHIN [Suspect]
     Active Substance: CEFTRIAXONE SODIUM
     Indication: URINARY TRACT INFECTION
     Route: 041
     Dates: start: 201507, end: 201507
  17. ASPIRIN CARDIO [Concomitant]
     Active Substance: ASPIRIN
     Dosage: 100 MG/D
     Route: 065
  18. CRESTOR [Concomitant]
     Active Substance: ROSUVASTATIN CALCIUM
  19. DAFALGAN [Concomitant]
     Active Substance: ACETAMINOPHEN
     Dosage: 1 G 3X/D
     Route: 065
  20. REMERON [Suspect]
     Active Substance: MIRTAZAPINE
     Indication: PAIN
     Route: 065
     Dates: start: 201507

REACTIONS (4)
  - Fall [Unknown]
  - Clostridium difficile colitis [Recovered/Resolved]
  - Confusional state [Recovered/Resolved]
  - Traumatic haematoma [Recovered/Resolved]

NARRATIVE: CASE EVENT DATE: 20150624
